FAERS Safety Report 4496708-2 (Version None)
Quarter: 2004Q4

REPORT INFORMATION
  Report Type: 
  Country: None (occurrence: None)
  Receive Date: 20041109
  Receipt Date: 20041102
  Transmission Date: 20050328
  Serious: Yes (Hospitalization)
  Sender: FDA-Public Use
  Company Number: US-BRISTOL-MYERS SQUIBB COMPANY-12753141

PATIENT
  Age: 62 Year
  Sex: Male

DRUGS (5)
  1. PRAVACHOL [Suspect]
  2. MICARDIS [Suspect]
     Indication: HYPERTENSION
     Dates: start: 19990501
  3. TENORMIN [Suspect]
     Indication: OBSESSIVE-COMPULSIVE DISORDER
     Dates: start: 20030101
  4. PROPRANOLOL [Concomitant]
  5. IMDUR [Concomitant]
     Indication: HYPERTENSION

REACTIONS (8)
  - AGITATION [None]
  - ANGIOPLASTY [None]
  - GAMBLING [None]
  - HYPOTENSION [None]
  - MEMORY IMPAIRMENT [None]
  - SEDATION [None]
  - SYNCOPE [None]
  - THINKING ABNORMAL [None]
